FAERS Safety Report 12114381 (Version 1)
Quarter: 2016Q1

REPORT INFORMATION
  Report Type: Spontaneous
  Country: US (occurrence: US)
  Receive Date: 20160225
  Receipt Date: 20160225
  Transmission Date: 20160526
  Serious: No
  Sender: FDA-Public Use
  Company Number: US-MYLANLABS-2015M1047951

PATIENT
  Age: 63 Year
  Sex: Female

DRUGS (1)
  1. METFORMIN [Suspect]
     Active Substance: METFORMIN HYDROCHLORIDE
     Indication: TYPE 2 DIABETES MELLITUS
     Dosage: 500 MG, UNK
     Dates: end: 201511

REACTIONS (5)
  - Eye swelling [Unknown]
  - Vomiting [Unknown]
  - Diarrhoea [Unknown]
  - Lip swelling [Unknown]
  - Reaction to drug excipients [Unknown]
